FAERS Safety Report 7846471-X (Version None)
Quarter: 2011Q4

REPORT INFORMATION
  Report Type: 
  Country: None (occurrence: None)
  Receive Date: 20111025
  Receipt Date: 20111025
  Transmission Date: 20120403
  Serious: Yes (Life-Threatening, Other)
  Sender: FDA-Public Use
  Company Number: None

PATIENT
  Age: 57 Year
  Sex: Female
  Weight: 74.842 kg

DRUGS (1)
  1. PREDNISONE [Suspect]
     Indication: URTICARIA
     Dosage: 3X3 2X3 1X3 1/2 UNTIL GONE
     Route: 048
     Dates: start: 20110904, end: 20110920

REACTIONS (8)
  - GAIT DISTURBANCE [None]
  - MOVEMENT DISORDER [None]
  - PAIN [None]
  - OEDEMA PERIPHERAL [None]
  - VULVOVAGINAL MYCOTIC INFECTION [None]
  - SYSTEMIC LUPUS ERYTHEMATOSUS [None]
  - ARTHRITIS [None]
  - IMMUNE SYSTEM DISORDER [None]
